FAERS Safety Report 10606681 (Version 2)
Quarter: 2014Q4

REPORT INFORMATION
  Report Type: Spontaneous
  Country: US (occurrence: US)
  Receive Date: 20141125
  Receipt Date: 20141125
  Transmission Date: 20150529
  Serious: Yes (Death)
  Sender: FDA-Public Use
  Company Number: US-JNJCP-30000251586

PATIENT
  Sex: Female

DRUGS (3)
  1. SHOWER TO SHOWER TALCUM PRODUCT [Suspect]
     Active Substance: TALC
     Route: 061
  2. JOHNSONS BABY PRODUCTS [Suspect]
     Active Substance: UNSPECIFIED INGREDIENT
     Route: 061
  3. GOLDBOND [Suspect]
     Active Substance: MENTHOL\ZINC OXIDE
     Route: 061

REACTIONS (1)
  - Ovarian cancer [Fatal]
